FAERS Safety Report 9507599 (Version 1)
Quarter: 2013Q3

REPORT INFORMATION
  Report Type: Spontaneous
  Country: DE (occurrence: None)
  Receive Date: 20130905
  Receipt Date: 20130905
  Transmission Date: 20140515
  Serious: Yes (Hospitalization)
  Sender: FDA-Public Use
  Company Number: 2013MPI00511

PATIENT
  Age: 59 Year
  Sex: Male

DRUGS (5)
  1. ADCETRIS [Suspect]
     Indication: HODGKIN^S DISEASE RECURRENT
     Dosage: 128 MG, Q21D, INTRAVENOUS
     Route: 042
     Dates: start: 20130731
  2. PANTOZOL (ERYTHROMYCIN ETHYLSUCCINATE, SULFAFURAZOLE) [Concomitant]
  3. CALCIUM CARBONATE W/COLECALCIFEROL (CALCIUM CARGONATE W/COLECALCIFEROL) [Concomitant]
  4. FOLVITE (FOLIC ACID) [Concomitant]
  5. ZOLADEX (GOSERELIN ACETATE) [Concomitant]

REACTIONS (4)
  - Faecaloma [None]
  - Ileus paralytic [None]
  - Cholecystitis [None]
  - C-reactive protein increased [None]
